FAERS Safety Report 11230577 (Version 1)
Quarter: 2015Q3

REPORT INFORMATION
  Report Type: Spontaneous
  Country: FR (occurrence: FR)
  Receive Date: 20150701
  Receipt Date: 20150701
  Transmission Date: 20151125
  Serious: Yes (Hospitalization)
  Sender: FDA-Public Use
  Company Number: FR-ASTRAZENECA-2015SE62650

PATIENT
  Age: 9376 Day
  Sex: Female

DRUGS (3)
  1. XEROQUEL [Suspect]
     Active Substance: QUETIAPINE FUMARATE
     Route: 048
     Dates: start: 20150313, end: 20150313
  2. VALIUM [Suspect]
     Active Substance: DIAZEPAM
     Route: 065
     Dates: start: 20150313, end: 20150313
  3. PROPRANOLOL [Suspect]
     Active Substance: PROPRANOLOL\PROPRANOLOL HYDROCHLORIDE
     Dosage: ONCE/SINGLE ADMINISTRATION
     Route: 048
     Dates: start: 20150313, end: 20150313

REACTIONS (5)
  - Coma [Recovered/Resolved]
  - Bradycardia [Recovered/Resolved]
  - Poisoning deliberate [Recovered/Resolved]
  - Cardiogenic shock [Unknown]
  - Hypotension [Recovered/Resolved]

NARRATIVE: CASE EVENT DATE: 20150313
